FAERS Safety Report 4967701-8 (Version None)
Quarter: 2006Q2

REPORT INFORMATION
  Report Type: 
  Country: None (occurrence: None)
  Receive Date: 20060410
  Receipt Date: 20050412
  Transmission Date: 20061013
  Serious: Yes (Hospitalization, Disabling)
  Sender: FDA-Public Use
  Company Number: US-MERCK-0504USA02133

PATIENT
  Age: 67 Year
  Sex: Male
  Weight: 118 kg

DRUGS (1)
  1. VIOXX [Suspect]
     Indication: ARTHRITIS
     Route: 048
     Dates: start: 20000107, end: 20040930

REACTIONS (7)
  - ARTHROPATHY [None]
  - CORONARY ARTERY DISEASE [None]
  - CORONARY ARTERY STENOSIS [None]
  - DEPRESSION [None]
  - INGUINAL HERNIA [None]
  - MYOCARDIAL INFARCTION [None]
  - PERSONALITY CHANGE [None]
